FAERS Safety Report 20706449 (Version 2)
Quarter: 2022Q2

REPORT INFORMATION
  Report Type: Spontaneous
  Country: US (occurrence: US)
  Receive Date: 20220413
  Receipt Date: 20220425
  Transmission Date: 20220721
  Serious: No
  Sender: FDA-Public Use
  Company Number: US-MYLANLABS-2022M1023625

PATIENT
  Age: 67 Year
  Sex: Male
  Weight: 95.25 kg

DRUGS (15)
  1. GOCOVRI [Suspect]
     Active Substance: AMANTADINE
     Indication: Dyskinesia
     Dosage: 68.5 MILLIGRAM, HS
     Route: 048
     Dates: start: 202112, end: 202201
  2. GOCOVRI [Suspect]
     Active Substance: AMANTADINE
     Dosage: 68.5 MILLIGRAM, HS
     Route: 048
     Dates: start: 2022, end: 2022
  3. GOCOVRI [Suspect]
     Active Substance: AMANTADINE
     Dosage: 68.5 MG, 1X/DAY AT BEDTIME ALONG WITH 137 MG 1X/DAY
     Route: 048
     Dates: start: 202202, end: 2022
  4. GOCOVRI [Suspect]
     Active Substance: AMANTADINE
     Dosage: 68.5 MG, 1X/DAY AT BEDTIME ALONG WITH 137 MG 1X/DAY
     Route: 048
     Dates: start: 2022, end: 202203
  5. GOCOVRI [Suspect]
     Active Substance: AMANTADINE
     Indication: Dyskinesia
     Dosage: 137 MILLIGRAM, HS
     Route: 048
     Dates: start: 2022, end: 2022
  6. GOCOVRI [Suspect]
     Active Substance: AMANTADINE
     Dosage: 137 MG, 1X/DAY AT BEDTIME ALONG WITH 68.5 MG 1X/DAY
     Route: 048
     Dates: start: 202202, end: 2022
  7. RASAGILINE [Concomitant]
     Active Substance: RASAGILINE
     Dosage: UNK
  8. CARBIDOPA\LEVODOPA [Concomitant]
     Active Substance: CARBIDOPA\LEVODOPA
     Indication: Tremor
     Dosage: UNK UNK, QID
     Route: 048
  9. CARBIDOPA\LEVODOPA [Concomitant]
     Active Substance: CARBIDOPA\LEVODOPA
     Dosage: UNK
  10. NEBIVOLOL [Concomitant]
     Active Substance: NEBIVOLOL
     Dosage: UNK
  11. LOSARTAN [Concomitant]
     Active Substance: LOSARTAN
     Dosage: UNK
  12. VITAMIN B12 [Concomitant]
     Active Substance: CYANOCOBALAMIN
     Dosage: UNK
  13. ROSUVASTATIN [Concomitant]
     Active Substance: ROSUVASTATIN
     Dosage: UNK
  14. ASPIRIN [Concomitant]
     Active Substance: ASPIRIN
     Dosage: UNK
  15. TAMSULOSIN [Concomitant]
     Active Substance: TAMSULOSIN
     Dosage: UNK

REACTIONS (1)
  - Drug ineffective [Unknown]

NARRATIVE: CASE EVENT DATE: 20211201
